FAERS Safety Report 9879787 (Version 1)
Quarter: 2014Q1

REPORT INFORMATION
  Report Type: Spontaneous
  Country: GB (occurrence: GB)
  Receive Date: 20140206
  Receipt Date: 20140206
  Transmission Date: 20141002
  Serious: Yes (Other)
  Sender: FDA-Public Use
  Company Number: GB-WATSON-2014-01565

PATIENT
  Age: 87 Year
  Sex: Male

DRUGS (1)
  1. MIRTAZAPINE (UNKNOWN) [Suspect]
     Indication: DEPRESSION
     Dosage: 15 MG AT NIGHT
     Route: 065
     Dates: start: 201103

REACTIONS (1)
  - Unresponsive to stimuli [Recovered/Resolved]
